FAERS Safety Report 9848212 (Version 2)
Quarter: 2014Q1

REPORT INFORMATION
  Report Type: Spontaneous
  Country: US (occurrence: US)
  Receive Date: 20140128
  Receipt Date: 20140314
  Transmission Date: 20141002
  Serious: No
  Sender: FDA-Public Use
  Company Number: US-PFIZER INC-2014023130

PATIENT
  Age: 82 Year
  Sex: Female
  Weight: 59.41 kg

DRUGS (4)
  1. LYRICA [Suspect]
     Dosage: UNK
  2. LOVAZA [Suspect]
     Dosage: UNK
  3. METFORMIN HYDROCHLORIDE [Concomitant]
     Indication: DIABETES MELLITUS
     Dosage: 100 MG, DAILY (AT BEDTIME)
  4. PRAVASTATIN [Concomitant]
     Indication: HYPERTENSION
     Dosage: UNK

REACTIONS (10)
  - Joint swelling [Not Recovered/Not Resolved]
  - Skin disorder [Not Recovered/Not Resolved]
  - Local swelling [Not Recovered/Not Resolved]
  - Product taste abnormal [Unknown]
  - Skin discolouration [Not Recovered/Not Resolved]
  - Vision blurred [Not Recovered/Not Resolved]
  - Visual impairment [Not Recovered/Not Resolved]
  - Malaise [Not Recovered/Not Resolved]
  - Dry skin [Not Recovered/Not Resolved]
  - Alopecia [Not Recovered/Not Resolved]
